FAERS Safety Report 8513305-X (Version None)
Quarter: 2012Q3

REPORT INFORMATION
  Report Type: 
  Country: None (occurrence: None)
  Receive Date: 20120716
  Receipt Date: 20120706
  Transmission Date: 20120928
  Serious: Yes (Other)
  Sender: FDA-Public Use
  Company Number: US-ROCHE-1085104

PATIENT
  Sex: Female

DRUGS (3)
  1. ACTEMRA [Suspect]
     Route: 042
     Dates: start: 20120201
  2. ACTEMRA [Suspect]
     Indication: RHEUMATOID ARTHRITIS
     Route: 042
     Dates: start: 20111101
  3. ACTEMRA [Suspect]
     Route: 042
     Dates: start: 20120629

REACTIONS (2)
  - CYSTITIS [None]
  - CATARACT OPERATION [None]
